FAERS Safety Report 7487333-X (Version None)
Quarter: 2011Q2

REPORT INFORMATION
  Report Type: 
  Country: None (occurrence: None)
  Receive Date: 20110510
  Receipt Date: 20110429
  Transmission Date: 20111010
  Serious: Yes (Life-Threatening)
  Sender: FDA-Public Use
  Company Number: DKLU1070291

PATIENT
  Sex: Male

DRUGS (1)
  1. ELSPAR [Suspect]
     Indication: PRODUCT USED FOR UNKNOWN INDICATION
     Dosage: 17000 IU INTERNATIONAL UNIT(S), INTRAMUSCULAR
     Route: 030

REACTIONS (4)
  - CYANOSIS [None]
  - DYSPNOEA [None]
  - NAUSEA [None]
  - ABDOMINAL PAIN [None]
